FAERS Safety Report 7736235-X (Version None)
Quarter: 2011Q3

REPORT INFORMATION
  Report Type: 
  Country: None (occurrence: None)
  Receive Date: 20110908
  Receipt Date: 20110830
  Transmission Date: 20111222
  Serious: Yes (Hospitalization)
  Sender: FDA-Public Use
  Company Number: US-ASTELLAS-2011US005329

PATIENT
  Sex: Female
  Weight: 68 kg

DRUGS (1)
  1. PROGRAF [Suspect]
     Indication: LIVER TRANSPLANT
     Dosage: 3 MG, BID
     Route: 048
     Dates: start: 20091004

REACTIONS (3)
  - LIVER DISORDER [None]
  - PAIN [None]
  - TREATMENT NONCOMPLIANCE [None]
